FAERS Safety Report 11424633 (Version 2)
Quarter: 2015Q3

REPORT INFORMATION
  Report Type: Report from Study
  Country: BR (occurrence: BR)
  Receive Date: 20150827
  Receipt Date: 20150911
  Transmission Date: 20151125
  Serious: Yes (Death, Hospitalization, Other)
  Sender: FDA-Public Use
  Company Number: PHHY2015BR103353

PATIENT
  Age: 71 Year
  Sex: Female
  Weight: 80 kg

DRUGS (1)
  1. DIOVAN [Suspect]
     Active Substance: VALSARTAN
     Indication: HYPERTENSION
     Route: 048

REACTIONS (8)
  - Renal disorder [Fatal]
  - Renal failure [Not Recovered/Not Resolved]
  - Asthenia [Unknown]
  - Lung infection [Fatal]
  - Pneumonia [Not Recovered/Not Resolved]
  - Cardiac arrest [Fatal]
  - Dizziness [Not Recovered/Not Resolved]
  - Blood glucose decreased [Unknown]

NARRATIVE: CASE EVENT DATE: 20150802
